FAERS Safety Report 7914390-6 (Version None)
Quarter: 2011Q4

REPORT INFORMATION
  Report Type: 
  Country: None (occurrence: None)
  Receive Date: 20111115
  Receipt Date: 20111012
  Transmission Date: 20120403
  Serious: Yes (Other)
  Sender: FDA-Public Use
  Company Number: CA-JNJFOC-20111013217

PATIENT
  Sex: Female
  Weight: 48 kg

DRUGS (3)
  1. HYDROCORTISONE [Concomitant]
     Indication: PREMEDICATION
     Route: 042
  2. REMICADE [Suspect]
     Indication: CROHN'S DISEASE
     Route: 042
     Dates: start: 20071205
  3. REMICADE [Suspect]
     Route: 042
     Dates: start: 20111012

REACTIONS (16)
  - HYPOTENSION [None]
  - ABDOMINAL PAIN [None]
  - GAIT DISTURBANCE [None]
  - DECREASED APPETITE [None]
  - PYREXIA [None]
  - DYSPNOEA [None]
  - ASTHENIA [None]
  - WEIGHT DECREASED [None]
  - DIARRHOEA [None]
  - HEART RATE INCREASED [None]
  - INFUSION RELATED REACTION [None]
  - PALLOR [None]
  - HYPERHIDROSIS [None]
  - MALAISE [None]
  - VOMITING [None]
  - FATIGUE [None]
